FAERS Safety Report 7790095-X (Version None)
Quarter: 2011Q3

REPORT INFORMATION
  Report Type: 
  Country: None (occurrence: None)
  Receive Date: 20110930
  Receipt Date: 20110628
  Transmission Date: 20111222
  Serious: No
  Sender: FDA-Public Use
  Company Number: US-ASTRAZENECA-2011SE23297

PATIENT
  Age: 910 Month
  Sex: Female

DRUGS (1)
  1. ANASTROZOLE [Suspect]
     Indication: BREAST CANCER
     Route: 048
     Dates: start: 20110201

REACTIONS (3)
  - PRURITUS [None]
  - DRUG HYPERSENSITIVITY [None]
  - LACRIMATION INCREASED [None]
